FAERS Safety Report 6084073-9 (Version None)
Quarter: 2009Q1

REPORT INFORMATION
  Report Type: 
  Country: None (occurrence: None)
  Receive Date: 20090217
  Receipt Date: 20090217
  Transmission Date: 20090719
  Serious: Yes (Hospitalization, Other)
  Sender: FDA-Public Use
  Company Number: None

PATIENT
  Age: 52 Year
  Sex: Female
  Weight: 122.4712 kg

DRUGS (2)
  1. OXYCONTIN [Suspect]
     Indication: FIBROMYALGIA
     Dosage: ONE TAB BID PO
     Route: 048
     Dates: start: 20060601, end: 20090125
  2. OXYCONTIN [Suspect]
     Indication: PAIN
     Dosage: ONE TAB BID PO
     Route: 048
     Dates: start: 20060601, end: 20090125

REACTIONS (3)
  - AMNESIA [None]
  - ANGER [None]
  - PARTNER STRESS [None]
